FAERS Safety Report 5068320-8 (Version None)
Quarter: 2006Q3

REPORT INFORMATION
  Report Type: 
  Country: None (occurrence: None)
  Receive Date: 20060802
  Receipt Date: 20050801
  Transmission Date: 20061208
  Serious: Yes (Other)
  Sender: FDA-Public Use
  Company Number: US-BRISTOL-MYERS SQUIBB COMPANY-13058581

PATIENT
  Age: 68 Year
  Sex: Female
  Weight: 86 kg

DRUGS (3)
  1. COUMADIN [Suspect]
     Indication: UPPER LIMB FRACTURE
     Dosage: DRUG HELD FOR 4 DAYS: 01-AUG-2005 TO 04-AUG-2005.
     Route: 048
     Dates: start: 20050201
  2. CEPHALEXIN [Concomitant]
     Dates: end: 20050701
  3. NEO-POLYCIN HC [Concomitant]
     Route: 001
     Dates: end: 20050701

REACTIONS (1)
  - INTERNATIONAL NORMALISED RATIO INCREASED [None]
